FAERS Safety Report 18612120 (Version 2)
Quarter: 2021Q1

REPORT INFORMATION
  Report Type: Spontaneous
  Country: US (occurrence: US)
  Receive Date: 20201214
  Receipt Date: 20210204
  Transmission Date: 20210419
  Serious: Yes (Other)
  Sender: FDA-Public Use
  Company Number: US-TEVA-2020-US-1858133

PATIENT
  Age: 37 Year
  Sex: Female

DRUGS (9)
  1. OCTREOTIDE. [Suspect]
     Active Substance: OCTREOTIDE
     Indication: INSULINOMA
     Dosage: 100 MICROGRAM DAILY;
     Route: 058
  2. HYDROCHLOROTHIAZIDE. [Concomitant]
     Active Substance: HYDROCHLOROTHIAZIDE
     Indication: FLUID RETENTION
     Dosage: 25 MILLIGRAM DAILY;
     Route: 065
  3. DIAZOXIDE [Suspect]
     Active Substance: DIAZOXIDE
     Indication: INSULINOMA
     Dosage: 150 MILLIGRAM DAILY; THREE TIMES A DAY
     Route: 065
  4. PREDNISONE. [Suspect]
     Active Substance: PREDNISONE
     Indication: INSULINOMA
     Dosage: PATIENT DECREASED OWN PREDNISONE DOSE
     Route: 065
  5. VERAPAMIL [Suspect]
     Active Substance: VERAPAMIL HYDROCHLORIDE
     Indication: INSULINOMA
     Dosage: 240 MILLIGRAM DAILY; THREE TIMES A DAY
     Route: 065
  6. PREDNISONE. [Suspect]
     Active Substance: PREDNISONE
     Indication: INSULINOMA
     Dosage: EVERY MORNING (DECREASED ON THE PATIENT^S REQUEST)
     Route: 065
  7. PREDNISONE. [Suspect]
     Active Substance: PREDNISONE
     Indication: INSULINOMA
     Dosage: 5MG EVERY MORNING AND 2.5MG IN THE AFTERNOON
     Route: 065
  8. DIAZOXIDE [Suspect]
     Active Substance: DIAZOXIDE
     Dosage: 200 MILLIGRAM DAILY;
     Route: 065
  9. DIAZOXIDE [Suspect]
     Active Substance: DIAZOXIDE
     Dosage: 300 MILLIGRAM DAILY;
     Route: 065

REACTIONS (4)
  - Off label use [Unknown]
  - Drug ineffective [Unknown]
  - Fluid retention [Unknown]
  - Tachycardia [Unknown]
